FAERS Safety Report 26024059 (Version 1)
Quarter: 2025Q4

REPORT INFORMATION
  Report Type: Spontaneous
  Country: EU (occurrence: EU)
  Receive Date: 20251111
  Receipt Date: 20251111
  Transmission Date: 20260118
  Serious: Yes (Life-Threatening, Other)
  Sender: AMGEN
  Company Number: EU-AMGEN-DEUSP2025221674

PATIENT
  Age: 61 Year
  Sex: Female

DRUGS (7)
  1. ECULIZUMAB [Suspect]
     Active Substance: ECULIZUMAB
     Indication: Immunomodulatory therapy
     Dosage: UNK
     Route: 065
  2. INEBILIZUMAB [Suspect]
     Active Substance: INEBILIZUMAB
     Indication: Immunomodulatory therapy
     Dosage: UNK
     Route: 065
  3. INEBILIZUMAB [Suspect]
     Active Substance: INEBILIZUMAB
     Indication: Neuromyelitis optica spectrum disorder
  4. RAVULIZUMAB [Suspect]
     Active Substance: RAVULIZUMAB
     Indication: Immunomodulatory therapy
     Dosage: UNK
     Route: 065
  5. RAVULIZUMAB [Suspect]
     Active Substance: RAVULIZUMAB
     Indication: Neuromyelitis optica spectrum disorder
  6. SATRALIZUMAB [Suspect]
     Active Substance: SATRALIZUMAB
     Indication: Immunomodulatory therapy
     Dosage: UNK
     Route: 065
  7. SATRALIZUMAB [Suspect]
     Active Substance: SATRALIZUMAB
     Indication: Neuromyelitis optica spectrum disorder

REACTIONS (9)
  - Immune effector cell-associated neurotoxicity syndrome [Recovered/Resolved]
  - Neuromyelitis optica spectrum disorder [Unknown]
  - Cytokine release syndrome [Recovered/Resolved]
  - Myelitis [Unknown]
  - Paraplegia [Unknown]
  - Leukapheresis [Unknown]
  - Visual impairment [Unknown]
  - Feeling abnormal [Unknown]
  - Off label use [Unknown]

NARRATIVE: CASE EVENT DATE: 20240101
